FAERS Safety Report 8372771-3 (Version None)
Quarter: 2012Q2

REPORT INFORMATION
  Report Type: 
  Country: None (occurrence: None)
  Receive Date: 20120521
  Receipt Date: 20120514
  Transmission Date: 20120825
  Serious: Yes (Other)
  Sender: FDA-Public Use
  Company Number: GB-PFIZER INC-2012116414

PATIENT
  Age: 72 Year
  Sex: Female
  Weight: 70.4 kg

DRUGS (23)
  1. ISOSORBIDE MONONITRATE [Concomitant]
     Dosage: 60 MG ONCE DAILY IN MORNING
  2. BUMETANIDE [Concomitant]
     Dosage: 1MG ONCE DAILY IN THE MORNING
  3. ATENOLOL [Concomitant]
     Dosage: 25 MG, 2X/DAY
  4. ZUCLOPENTHIXOL DECANOATE [Concomitant]
     Dosage: 300 MG, 2X/WEEK
  5. MIRTAZAPINE [Concomitant]
     Dosage: 45MG, ONCE DAILY AT NIGHT
  6. SOLIFENACIN [Concomitant]
     Dosage: 5MG ONCE DAILY IN THE MORNING
  7. SIMVASTATIN [Concomitant]
     Dosage: 40MG ONCE DAILY AT NIGHT
  8. MOVIPREP [Concomitant]
     Dosage: 1 SACHET, TWICE A DAY
  9. IBUPROFEN [Concomitant]
     Dosage: 1 DOSE FORM THREE TIMES DAILY
  10. LACRI-LUBE [Concomitant]
     Dosage: 1 DROP FOUR TIMES A DAY
  11. PARACETAMOL [Concomitant]
     Dosage: 1G FOUR TIMES DAILY
  12. LEVOTHYROXINE [Concomitant]
     Dosage: 225UG ONCE DAILY IN THE MORNING
  13. PROCYCLIDINE [Concomitant]
     Dosage: 2.5MG TWICE DAILY;
  14. OMEPRAZOLE [Concomitant]
     Dosage: 20MG ONCE DAILY IN THE MORNING
  15. TRAMADOL [Concomitant]
     Dosage: 50 MG, 3X/DAY
  16. INTRASITE [Concomitant]
     Dosage: 1 DF, 2X/DAY
  17. DOXYCYCLINE MONOHYDRATE [Suspect]
     Indication: URINARY TRACT INFECTION
     Dosage: 100 MG, UNK
     Route: 048
     Dates: start: 20120329, end: 20120330
  18. NICORANDIL [Concomitant]
     Dosage: 30 MG, 2X/DAY
  19. TIOTROPIUM BROMIDE [Concomitant]
     Dosage: 1 PUFF ONCE DAILY, IN THE MORNING
     Route: 055
  20. VALPROATE SODIUM [Concomitant]
     Dosage: 1.2G TWICE DAILY
  21. AMLODIPINE [Concomitant]
     Dosage: 10MG ONCE DAILY IN THE MORNING
  22. RAMIPRIL [Concomitant]
     Dosage: 10MG ONCE DAILY IN THE MORNING
  23. QUININE SULFATE [Concomitant]
     Dosage: 200 MG ONCE DAILY AT NIGHT;

REACTIONS (1)
  - SWELLING FACE [None]
